FAERS Safety Report 23316996 (Version 1)
Quarter: 2023Q4

REPORT INFORMATION
  Report Type: Report from Study
  Country: US (occurrence: US)
  Receive Date: 20231219
  Receipt Date: 20231219
  Transmission Date: 20240110
  Serious: Yes (Other)
  Sender: FDA-Public Use
  Company Number: US-ABBVIE-5459025

PATIENT
  Age: 75 Year
  Sex: Male
  Weight: 56 kg

DRUGS (17)
  1. DUOPA [Suspect]
     Active Substance: CARBIDOPA\LEVODOPA
     Indication: Parkinson^s disease
     Dosage: 7.2 PER HOUR/STRENGTH 4.63-20MG/DOSE/FREQUENCY: ADMINISTER CONTENTS OF 2 CASSETTES VIA PEG-J FOR ...
     Route: 050
     Dates: start: 20210920
  2. DUOPA [Suspect]
     Active Substance: CARBIDOPA\LEVODOPA
     Indication: On and off phenomenon
     Dosage: DUOPA 4.63 MG-20 MG/ML SUSPENSION IN J-TUBE PUMP?MORNING DOSE: 3ML (0-11.5M L), CONT. DOSE: 7.2M ...
     Route: 050
     Dates: start: 20230912
  3. LEXAPRO [Suspect]
     Active Substance: ESCITALOPRAM OXALATE
     Indication: Parkinson^s disease
     Route: 048
     Dates: start: 20230417
  4. TYLENOL [Concomitant]
     Active Substance: ACETAMINOPHEN
     Indication: Product used for unknown indication
  5. NUPLAZID [Concomitant]
     Active Substance: PIMAVANSERIN TARTRATE
     Indication: Hallucination
     Route: 048
     Dates: start: 20230905
  6. MYRBETRIQ [Concomitant]
     Active Substance: MIRABEGRON
     Indication: Urinary tract disorder
     Dosage: SWALLOWING WHOLE WITH WATER, DO NOT CRUSH, CHEW OR DIVIDE
     Route: 048
     Dates: start: 20230905
  7. QUETIAPINE [Concomitant]
     Active Substance: QUETIAPINE
     Indication: Hallucination
     Dosage: TAKE ONE TABLET IN MORNING AND TWO TABLET IN EVENING
     Route: 048
  8. ATORVASTATIN [Concomitant]
     Active Substance: ATORVASTATIN
     Indication: Blood cholesterol increased
     Route: 048
     Dates: start: 20210909
  9. FINASTERIDE [Concomitant]
     Active Substance: FINASTERIDE
     Indication: Urinary tract disorder
     Dosage: AT BED TIME
     Route: 048
     Dates: start: 20201217
  10. VITAMIN D3 [Concomitant]
     Active Substance: CHOLECALCIFEROL
     Indication: Product used for unknown indication
  11. ALFUZOSIN [Concomitant]
     Active Substance: ALFUZOSIN
     Indication: Product used for unknown indication
     Route: 048
     Dates: start: 20220329
  12. ENTACAPONE [Concomitant]
     Active Substance: ENTACAPONE
     Indication: Confusional state
  13. MELATONIN [Concomitant]
     Active Substance: MELATONIN
     Indication: Product used for unknown indication
     Dosage: 10 MG
  14. INBRIJA [Concomitant]
     Active Substance: LEVODOPA
     Indication: Product used for unknown indication
  15. INFLUENZA VIRUS VACCINE [Concomitant]
     Active Substance: INFLUENZA VIRUS VACCINE
     Indication: Product used for unknown indication
     Dates: start: 20201002, end: 20201002
  16. PFIZER-BIONTECH COVID-19 VACCINE [Concomitant]
     Active Substance: TOZINAMERAN
     Indication: COVID-19 immunisation
     Dates: start: 20210305, end: 20210305
  17. SERTRALINE [Concomitant]
     Active Substance: SERTRALINE HYDROCHLORIDE
     Indication: Product used for unknown indication

REACTIONS (45)
  - Deafness [Unknown]
  - Delusion [Not Recovered/Not Resolved]
  - Dementia [Not Recovered/Not Resolved]
  - Parkinson^s disease [Not Recovered/Not Resolved]
  - Loss of personal independence in daily activities [Unknown]
  - Hospice care [Unknown]
  - Tremor [Not Recovered/Not Resolved]
  - Hallucination [Not Recovered/Not Resolved]
  - Hyperlipidaemia [Unknown]
  - Dementia with Lewy bodies [Unknown]
  - Memory impairment [Unknown]
  - Mobility decreased [Unknown]
  - Social problem [Unknown]
  - Loss of personal independence in daily activities [Unknown]
  - Major depression [Unknown]
  - Anxiety [Unknown]
  - Neurogenic bladder [Unknown]
  - Visual impairment [Unknown]
  - Disturbance in attention [Unknown]
  - Gait disturbance [Unknown]
  - Cognitive disorder [Unknown]
  - Depressed mood [Unknown]
  - Hypoaesthesia [Unknown]
  - Dyskinesia [Unknown]
  - On and off phenomenon [Unknown]
  - Behaviour disorder [Unknown]
  - Syncope [Unknown]
  - Dopamine dysregulation syndrome [Unknown]
  - Sleep disorder [Unknown]
  - Somnolence [Unknown]
  - Pain [Unknown]
  - Urinary tract disorder [Unknown]
  - Constipation [Unknown]
  - Dizziness postural [Unknown]
  - Dizziness [Unknown]
  - Fatigue [Unknown]
  - Drooling [Unknown]
  - Mastication disorder [Unknown]
  - Freezing phenomenon [Unknown]
  - Asthenia [Unknown]
  - Musculoskeletal stiffness [Unknown]
  - Neoplasm progression [Unknown]
  - Dystonia [Unknown]
  - Brain fog [Unknown]
  - Fall [Unknown]

NARRATIVE: CASE EVENT DATE: 20221028
